FAERS Safety Report 6980716-3 (Version None)
Quarter: 2010Q3

REPORT INFORMATION
  Report Type: 
  Country: None (occurrence: None)
  Receive Date: 20100914
  Receipt Date: 20100831
  Transmission Date: 20110219
  Serious: Yes (Hospitalization)
  Sender: FDA-Public Use
  Company Number: US-BAYER-201028694NA

PATIENT
  Age: 47 Year
  Sex: Female
  Weight: 82 kg

DRUGS (8)
  1. YASMIN [Suspect]
     Indication: ORAL CONTRACEPTION
     Route: 048
     Dates: start: 20020401, end: 20020701
  2. MOTRIN [Concomitant]
  3. SEASILVER [Concomitant]
  4. WELLBUTRIN [Concomitant]
  5. TYLENOL ES [Concomitant]
  6. NORCO 5/325 [Concomitant]
  7. IBUPROFEN [Concomitant]
  8. FLAGYL [Concomitant]

REACTIONS (8)
  - CHEST PAIN [None]
  - DYSPNOEA [None]
  - FATIGUE [None]
  - MUSCLE SPASMS [None]
  - OEDEMA PERIPHERAL [None]
  - PAIN IN EXTREMITY [None]
  - PULMONARY EMBOLISM [None]
  - SYNCOPE [None]
